FAERS Safety Report 11515308 (Version 1)
Quarter: 2015Q3

REPORT INFORMATION
  Report Type: Spontaneous
  Country: US (occurrence: US)
  Receive Date: 20150916
  Receipt Date: 20150916
  Transmission Date: 20151125
  Serious: No
  Sender: FDA-Public Use
  Company Number: US-TEVA-593293USA

PATIENT
  Age: 57 Year
  Sex: Male
  Weight: 70.37 kg

DRUGS (19)
  1. PROVIGIL [Suspect]
     Active Substance: MODAFINIL
     Dates: start: 20150701, end: 20150801
  2. FLUTICASONE NASAL SPRAY [Concomitant]
     Active Substance: FLUTICASONE\FLUTICASONE PROPIONATE
     Indication: SEASONAL ALLERGY
  3. OXYCODONE [Concomitant]
     Active Substance: OXYCODONE
     Indication: PAIN
  4. SENNOSIDE                          / [Concomitant]
     Indication: CONSTIPATION
  5. LORATADINE. [Concomitant]
     Active Substance: LORATADINE
     Indication: SEASONAL ALLERGY
  6. VITAMIN D [Concomitant]
     Active Substance: CHOLECALCIFEROL
     Indication: VITAMIN SUPPLEMENTATION
  7. VIAGRA [Concomitant]
     Active Substance: SILDENAFIL CITRATE
  8. VITAMIN C [Concomitant]
     Active Substance: ASCORBIC ACID
     Indication: VITAMIN SUPPLEMENTATION
  9. PROVIGIL [Suspect]
     Active Substance: MODAFINIL
     Indication: NARCOLEPSY
     Dates: start: 20150701, end: 20150801
  10. DOCUSATE [Concomitant]
     Active Substance: DOCUSATE
     Indication: GASTROINTESTINAL DISORDER
  11. OMEPRAZOLE. [Concomitant]
     Active Substance: OMEPRAZOLE
     Indication: GASTROOESOPHAGEAL REFLUX DISEASE
  12. CRESTOR [Concomitant]
     Active Substance: ROSUVASTATIN CALCIUM
     Indication: BLOOD CHOLESTEROL INCREASED
  13. TAMSULOSIN [Concomitant]
     Active Substance: TAMSULOSIN
  14. PROVIGIL [Suspect]
     Active Substance: MODAFINIL
     Dosage: CUT IN HALF
     Dates: start: 20150701, end: 20150801
  15. FLEXERIL [Concomitant]
     Active Substance: CYCLOBENZAPRINE HYDROCHLORIDE
     Indication: MUSCLE RELAXANT THERAPY
  16. POTASSIUM [Concomitant]
     Active Substance: POTASSIUM
  17. LISINOPRIL. [Concomitant]
     Active Substance: LISINOPRIL
  18. METOPROLOL [Concomitant]
     Active Substance: METOPROLOL
     Indication: CARDIAC DISORDER
  19. VITAMIN B COMPLEX [Concomitant]
     Active Substance: CYANOCOBALAMIN\DEXPANTHENOL\NIACINAMIDE\PYRIDOXINE HYDROCHLORIDE\RIBOFLAVIN 5^-PHOSPHATE SODIUM\THIAMINE HYDROCHLORIDE\VITAMIN B COMPLEX
     Indication: VITAMIN SUPPLEMENTATION

REACTIONS (4)
  - Oral mucosal blistering [Not Recovered/Not Resolved]
  - Urine amphetamine positive [Not Recovered/Not Resolved]
  - Renal disorder [Unknown]
  - Stomatitis [Not Recovered/Not Resolved]

NARRATIVE: CASE EVENT DATE: 201508
